FAERS Safety Report 9933511 (Version 2)
Quarter: 2014Q1

REPORT INFORMATION
  Report Type: Report from Study
  Country: US (occurrence: US)
  Receive Date: 20140228
  Receipt Date: 20140228
  Transmission Date: 20141002
  Serious: No
  Sender: FDA-Public Use
  Company Number: US-MYLANLABS-2013S1022040

PATIENT
  Age: 15 Year
  Sex: Male

DRUGS (4)
  1. AMNESTEEM CAPSULES [Suspect]
     Indication: ACNE
     Route: 048
     Dates: start: 201304, end: 20130709
  2. AMNESTEEM CAPSULES [Suspect]
     Indication: ACNE
     Route: 048
     Dates: start: 201304, end: 20130709
  3. CLARAVIS [Suspect]
     Indication: ACNE
     Route: 048
     Dates: start: 201301, end: 201304
  4. CLARAVIS [Suspect]
     Indication: ACNE
     Route: 048
     Dates: start: 201301, end: 201304

REACTIONS (1)
  - Arthralgia [Recovered/Resolved]
